FAERS Safety Report 4592550-2 (Version None)
Quarter: 2005Q1

REPORT INFORMATION
  Report Type: 
  Country: None (occurrence: None)
  Receive Date: 20050222
  Receipt Date: 20050217
  Transmission Date: 20050727
  Serious: Yes (Hospitalization)
  Sender: FDA-Public Use
  Company Number: 26232

PATIENT
  Age: 79 Year
  Sex: Female

DRUGS (1)
  1. ALDARA [Suspect]
     Indication: ACTINIC KERATOSIS
     Dosage: ( 3 IN 1 WEEK(S)), TOPICAL
     Route: 061
     Dates: start: 20050117, end: 20050201

REACTIONS (10)
  - APPLICATION SITE DESQUAMATION [None]
  - APPLICATION SITE ERYTHEMA [None]
  - APPLICATION SITE IRRITATION [None]
  - BLOOD PRESSURE INCREASED [None]
  - CEREBROVASCULAR ACCIDENT [None]
  - INFLUENZA LIKE ILLNESS [None]
  - LETHARGY [None]
  - PROTHROMBIN TIME PROLONGED [None]
  - PYREXIA [None]
  - WHITE BLOOD CELL COUNT INCREASED [None]
